FAERS Safety Report 23447106 (Version 1)
Quarter: 2024Q1

REPORT INFORMATION
  Report Type: Spontaneous
  Country: GB (occurrence: None)
  Receive Date: 20240126
  Receipt Date: 20240126
  Transmission Date: 20240409
  Serious: Yes (Hospitalization)
  Sender: FDA-Public Use
  Company Number: None

PATIENT
  Sex: Female

DRUGS (1)
  1. METHOTREXATE [Suspect]
     Active Substance: METHOTREXATE
     Indication: Polymyositis
     Dates: start: 20140201, end: 20140301

REACTIONS (5)
  - Fatigue [None]
  - Loss of personal independence in daily activities [None]
  - Interstitial lung disease [None]
  - Fibrosis [None]
  - Cyanosis [None]

NARRATIVE: CASE EVENT DATE: 20140201
